FAERS Safety Report 10379815 (Version 1)
Quarter: 2014Q1

REPORT INFORMATION
  Report Type: Spontaneous
  Country: US (occurrence: None)
  Receive Date: 20140306
  Receipt Date: 20140306
  Transmission Date: 20141002
  Serious: Yes (Other)
  Sender: FDA-Public Use
  Company Number: 163-21880-13033324

PATIENT
  Age: 70 Year
  Sex: Male
  Weight: 89.81 kg

DRUGS (2)
  1. REVLIMID (LENALIDOMIDE) (5 MILLIGRAM, CAPSULES) [Suspect]
     Indication: LYMPHOMA
     Route: 048
     Dates: start: 201206
  2. WARFARIN (WARFARIN) [Concomitant]

REACTIONS (1)
  - Platelet count decreased [None]
